FAERS Safety Report 6051842-0 (Version None)
Quarter: 2009Q1

REPORT INFORMATION
  Report Type: 
  Country: None (occurrence: None)
  Receive Date: 20090126
  Receipt Date: 20051222
  Transmission Date: 20090719
  Serious: Yes (Hospitalization)
  Sender: FDA-Public Use
  Company Number: HU-PFIZER INC-2008159905

PATIENT

DRUGS (4)
  1. CELECOXIB [Suspect]
     Indication: ADENOMATOUS POLYPOSIS COLI
     Dosage: 400 MG, 1X/DAY
     Dates: start: 20010618, end: 20040707
  2. ASPIRIN [Suspect]
     Dosage: 100 MG, 1X/DAY
     Route: 048
     Dates: start: 20030806
  3. NITRODERM [Concomitant]
     Dosage: UNK
     Dates: start: 20020806
  4. FERROGRAD FOLIC [Concomitant]
     Dosage: UNK
     Dates: start: 20030526

REACTIONS (2)
  - GASTRITIS EROSIVE [None]
  - HAEMORRHOIDS [None]
